FAERS Safety Report 9326416 (Version 2)
Quarter: 2013Q3

REPORT INFORMATION
  Report Type: Spontaneous
  Country: US (occurrence: US)
  Receive Date: 20130604
  Receipt Date: 20130904
  Transmission Date: 20140515
  Serious: No
  Sender: FDA-Public Use
  Company Number: US-AMGEN-USASP2013030729

PATIENT
  Age: 52 Year
  Sex: Male
  Weight: 62.13 kg

DRUGS (9)
  1. ENBREL [Suspect]
     Indication: PSORIASIS
     Dosage: 50 MG, 2 TIMES/WK
     Route: 058
     Dates: start: 201304
  2. ALBUTEROL SULFATE [Concomitant]
     Dosage: UNK
  3. ALPRAZOLAM [Concomitant]
     Dosage: 0.25 MG, UNK
     Route: 048
  4. FINASTERIDE [Concomitant]
     Dosage: 5 MG, UNK
     Route: 048
  5. MOBIC [Concomitant]
     Dosage: 7.5 MG, BID
     Route: 048
  6. PROVIR [Concomitant]
     Dosage: 100 MG, UNK
     Route: 048
  7. SINGULAIR [Concomitant]
     Dosage: 1 MG, UNK
     Route: 048
  8. TRUVADA [Concomitant]
     Dosage: 200-300 MG, UNK
     Route: 048
  9. SELZENTRY [Concomitant]
     Dosage: 150 MG, UNK
     Route: 048

REACTIONS (1)
  - Asthma [Recovered/Resolved]
